FAERS Safety Report 24188308 (Version 1)
Quarter: 2024Q3

REPORT INFORMATION
  Report Type: Spontaneous
  Country: US (occurrence: US)
  Receive Date: 20240808
  Receipt Date: 20240808
  Transmission Date: 20241017
  Serious: No
  Sender: OTSUKA
  Company Number: US-OTSUKA-2023_022302

PATIENT
  Age: 28 Year
  Sex: Male
  Weight: 63.05 kg

DRUGS (1)
  1. ABILIFY MAINTENA [Suspect]
     Active Substance: ARIPIPRAZOLE
     Indication: Schizophrenia
     Dosage: 400 MG ONCE A MONTH
     Route: 065

REACTIONS (3)
  - Feeding disorder [Not Recovered/Not Resolved]
  - Dysphagia [Not Recovered/Not Resolved]
  - Weight decreased [Not Recovered/Not Resolved]

NARRATIVE: CASE EVENT DATE: 20221101
